FAERS Safety Report 8041126-3 (Version None)
Quarter: 2012Q1

REPORT INFORMATION
  Report Type: 
  Country: None (occurrence: None)
  Receive Date: 20120112
  Receipt Date: 20120104
  Transmission Date: 20120608
  Serious: Yes (Hospitalization)
  Sender: FDA-Public Use
  Company Number: US-BAYER-2011-094231

PATIENT
  Age: 17 Year
  Sex: Female
  Weight: 46 kg

DRUGS (4)
  1. YAZ [Suspect]
  2. PREVACID [Concomitant]
     Dosage: UNK
     Dates: start: 20091108
  3. CALTRATE [CALCIUM CARBONATE] [Concomitant]
     Dosage: UNK
     Dates: start: 20100806
  4. YASMIN [Suspect]
     Indication: CONTRACEPTION
     Dosage: UNK
     Dates: start: 20091001, end: 20100107

REACTIONS (4)
  - BILIARY DYSKINESIA [None]
  - INJURY [None]
  - GALLBLADDER DISORDER [None]
  - PAIN [None]
